FAERS Safety Report 23488933 (Version 1)
Quarter: 2024Q1

REPORT INFORMATION
  Report Type: Report from Study
  Country: US (occurrence: US)
  Receive Date: 20240206
  Receipt Date: 20240206
  Transmission Date: 20240410
  Serious: Yes (Other)
  Sender: FDA-Public Use
  Company Number: US-BAUSCH-BL-2024-001783

PATIENT
  Age: 72 Year
  Sex: Female
  Weight: 102 kg

DRUGS (1)
  1. XIFAXAN [Suspect]
     Active Substance: RIFAXIMIN
     Indication: Product used for unknown indication
     Route: 048

REACTIONS (3)
  - Hepatocellular carcinoma [Unknown]
  - Rheumatoid arthritis [Unknown]
  - Confusional state [Unknown]
